FAERS Safety Report 5807498-2 (Version None)
Quarter: 2008Q3

REPORT INFORMATION
  Report Type: 
  Country: None (occurrence: None)
  Receive Date: 20080711
  Receipt Date: 20020419
  Transmission Date: 20090109
  Serious: Yes (Hospitalization)
  Sender: FDA-Public Use
  Company Number: US-BAXTER-2007BH009127

PATIENT

DRUGS (1)
  1. POTASSIUM CHLORIDE/DEXTROSE/SODIUM CHLORIDE [Suspect]
     Indication: DRUG USE FOR UNKNOWN INDICATION
     Route: 042
     Dates: start: 20020416, end: 20020416

REACTIONS (3)
  - MALAISE [None]
  - PYREXIA [None]
  - SERRATIA INFECTION [None]
